FAERS Safety Report 19493043 (Version 1)
Quarter: 2021Q3

REPORT INFORMATION
  Report Type: Report from Study
  Country: US (occurrence: US)
  Receive Date: 20210705
  Receipt Date: 20210705
  Transmission Date: 20211014
  Serious: Yes (Hospitalization, Other)
  Sender: FDA-Public Use
  Company Number: US-SA-2019SA340252

PATIENT
  Age: 60 Year
  Sex: Female
  Weight: 58 kg

DRUGS (8)
  1. TRIAMCINOLONE [Concomitant]
     Active Substance: TRIAMCINOLONE
     Dosage: UNK
     Route: 061
  2. BACTRIM [Concomitant]
     Active Substance: SULFAMETHOXAZOLE\TRIMETHOPRIM
     Dosage: UNK
  3. DUPILUMAB [Suspect]
     Active Substance: DUPILUMAB
     Dosage: 300 MG, QOW
     Route: 058
  4. DUPILUMAB [Suspect]
     Active Substance: DUPILUMAB
     Indication: DERMATITIS ATOPIC
     Dosage: 2 DF, 1X
     Route: 058
     Dates: start: 20191123, end: 2019
  5. XOLAIR [Suspect]
     Active Substance: OMALIZUMAB
     Dosage: UNK
  6. DUPILUMAB [Suspect]
     Active Substance: DUPILUMAB
     Indication: ECZEMA
     Dosage: 600 MG, 1X
     Route: 058
     Dates: start: 20191109, end: 20191109
  7. PREDNISONE. [Concomitant]
     Active Substance: PREDNISONE
     Dosage: ON A VERY SLOW TAPER OF PREDNISONE, IN INCREMENTS OF 2.5 MG
  8. DUPILUMAB [Suspect]
     Active Substance: DUPILUMAB
     Dosage: 300 MG, QOW
     Route: 058
     Dates: start: 2019, end: 20201216

REACTIONS (13)
  - Cardiac failure congestive [Unknown]
  - Product dose omission issue [Unknown]
  - Otitis externa [Not Recovered/Not Resolved]
  - Pruritus [Unknown]
  - Localised infection [Not Recovered/Not Resolved]
  - Therapeutic response shortened [Unknown]
  - Drug hypersensitivity [Recovering/Resolving]
  - Thrombosis [Unknown]
  - Discharge [Not Recovered/Not Resolved]
  - Cerebrovascular accident [Unknown]
  - Pruritus [Not Recovered/Not Resolved]
  - Extra dose administered [Unknown]
  - Rash [Unknown]

NARRATIVE: CASE EVENT DATE: 20191123
